FAERS Safety Report 7850036-3 (Version None)
Quarter: 2011Q4

REPORT INFORMATION
  Report Type: 
  Country: None (occurrence: None)
  Receive Date: 20111026
  Receipt Date: 20111013
  Transmission Date: 20120403
  Serious: No
  Sender: FDA-Public Use
  Company Number: US-B.I. PHARMACEUTICALS,INC./RIDGEFIELD-2010-BP-04250BP

PATIENT
  Sex: Male

DRUGS (2)
  1. CATAPRES [Suspect]
     Dosage: 0.3 MG
     Route: 048
     Dates: start: 19900101, end: 20090101
  2. CATAPRES [Suspect]
     Indication: HYPERTENSION
     Dosage: 0.6 MG
     Route: 048
     Dates: start: 20090101

REACTIONS (3)
  - HYPERTENSION [None]
  - BLOOD PRESSURE INCREASED [None]
  - BLOOD PRESSURE FLUCTUATION [None]
